FAERS Safety Report 19413427 (Version 2)
Quarter: 2021Q2

REPORT INFORMATION
  Report Type: Spontaneous
  Country: CO (occurrence: CO)
  Receive Date: 20210614
  Receipt Date: 20210618
  Transmission Date: 20210717
  Serious: No
  Sender: FDA-Public Use
  Company Number: CO-PFIZER INC-2020400341

PATIENT
  Age: 10 Year
  Sex: Male

DRUGS (1)
  1. GENOTROPIN [Suspect]
     Active Substance: SOMATROPIN
     Indication: GROWTH DISORDER
     Dosage: UNK
     Route: 058
     Dates: start: 201902, end: 2020

REACTIONS (6)
  - Decreased appetite [Unknown]
  - Weight increased [Unknown]
  - Device delivery system issue [Unknown]
  - Drug ineffective [Unknown]
  - Poor quality device used [Unknown]
  - Device physical property issue [Unknown]

NARRATIVE: CASE EVENT DATE: 2019
